FAERS Safety Report 10912939 (Version 1)
Quarter: 2015Q1

REPORT INFORMATION
  Report Type: Spontaneous
  Country: CZ (occurrence: CZ)
  Receive Date: 20150313
  Receipt Date: 20150313
  Transmission Date: 20150721
  Serious: Yes (Hospitalization, Other)
  Sender: FDA-Public Use
  Company Number: CZ-PFIZER INC-2015087678

PATIENT
  Age: 52 Year
  Sex: Male

DRUGS (3)
  1. METFORMIN [Concomitant]
     Active Substance: METFORMIN HYDROCHLORIDE
  2. IFIRMASTA [Concomitant]
     Dosage: UNK
  3. NEURONTIN [Suspect]
     Active Substance: GABAPENTIN
     Dosage: UNK
     Route: 048
     Dates: start: 20150114, end: 20150214

REACTIONS (3)
  - Rash [Unknown]
  - Pruritus [Unknown]
  - Oedema peripheral [Unknown]
